FAERS Safety Report 7227675-6 (Version None)
Quarter: 2011Q1

REPORT INFORMATION
  Report Type: 
  Country: None (occurrence: None)
  Receive Date: 20110114
  Receipt Date: 20091117
  Transmission Date: 20110831
  Serious: No
  Sender: FDA-Public Use
  Company Number: US-PFIZER INC-2009299701

PATIENT
  Sex: Female

DRUGS (3)
  1. LIPITOR [Interacting]
     Dosage: UNK
  2. CARDURA [Suspect]
     Dosage: UNK
  3. CARDURA [Interacting]
     Dosage: UNK

REACTIONS (2)
  - DRUG INTERACTION [None]
  - POLLAKIURIA [None]
